FAERS Safety Report 14948322 (Version 1)
Quarter: 2018Q2

REPORT INFORMATION
  Report Type: Spontaneous
  Country: US (occurrence: US)
  Receive Date: 20180508
  Receipt Date: 20180508
  Transmission Date: 20180711
  Serious: Yes (Hospitalization)
  Sender: FDA-Public Use
  Company Number: None

PATIENT
  Sex: Female
  Weight: 77.6 kg

DRUGS (1)
  1. PAZOPANIB (GW786034) (737754) [Suspect]
     Active Substance: PAZOPANIB
     Dosage: ?          OTHER FREQUENCY:28 DAYS CYCLE ;?
     Route: 048
     Dates: start: 20180419

REACTIONS (5)
  - Peripheral swelling [None]
  - Abdominal pain [None]
  - Pain in extremity [None]
  - Sepsis [None]
  - Back pain [None]

NARRATIVE: CASE EVENT DATE: 20180503
